FAERS Safety Report 21614430 (Version 1)
Quarter: 2022Q4

REPORT INFORMATION
  Report Type: Spontaneous
  Country: US (occurrence: None)
  Receive Date: 20221117
  Receipt Date: 20221117
  Transmission Date: 20230113
  Serious: Yes (Other)
  Sender: FDA-Public Use
  Company Number: None

PATIENT
  Age: 44 Year
  Sex: Female
  Weight: 51.75 kg

DRUGS (1)
  1. NURTEC ODT [Suspect]
     Active Substance: RIMEGEPANT SULFATE
     Indication: Migraine
     Dosage: OTHER QUANTITY : 1 SUBLINGUAL DOSE;?FREQUENCY : DAILY;?
     Route: 060
     Dates: start: 20221111, end: 20221113

REACTIONS (3)
  - Tinnitus [None]
  - Symptom recurrence [None]
  - Condition aggravated [None]

NARRATIVE: CASE EVENT DATE: 20221113
